FAERS Safety Report 14202448 (Version 2)
Quarter: 2019Q1

REPORT INFORMATION
  Report Type: Spontaneous
  Country: JP (occurrence: JP)
  Receive Date: 20171117
  Receipt Date: 20190218
  Transmission Date: 20190417
  Serious: Yes (Death, Other)
  Sender: FDA-Public Use
  Company Number: JP-009507513-1711JPN006814

PATIENT
  Age: 66 Year
  Sex: Male

DRUGS (6)
  1. TEMODAL [Suspect]
     Active Substance: TEMOZOLOMIDE
     Indication: GLIOBLASTOMA
     Dosage: CYCLICAL
     Route: 048
  2. TEMODAL [Suspect]
     Active Substance: TEMOZOLOMIDE
     Indication: MALIGNANT GLIOMA
  3. BEVACIZUMAB. [Suspect]
     Active Substance: BEVACIZUMAB
     Indication: GLIOBLASTOMA
     Dosage: UNK
  4. CARMUSTINE. [Concomitant]
     Active Substance: CARMUSTINE
     Indication: GLIOBLASTOMA
     Dosage: 8 PIECES
  5. TEMODAL [Suspect]
     Active Substance: TEMOZOLOMIDE
     Indication: CHEMOTHERAPY
  6. CARMUSTINE. [Concomitant]
     Active Substance: CARMUSTINE
     Dosage: 8 PIECES

REACTIONS (2)
  - Drug ineffective [Fatal]
  - Malignant neoplasm progression [Fatal]
